FAERS Safety Report 19090089 (Version 1)
Quarter: 2021Q2

REPORT INFORMATION
  Report Type: Spontaneous
  Country: US (occurrence: US)
  Receive Date: 20210404
  Receipt Date: 20210404
  Transmission Date: 20210717
  Serious: Yes (Other)
  Sender: FDA-Public Use
  Company Number: US-TEVA-2021-US-1896734

PATIENT

DRUGS (3)
  1. IRBESARTAN. [Suspect]
     Active Substance: IRBESARTAN
     Route: 065
  2. VALSARTAN. [Suspect]
     Active Substance: VALSARTAN
     Route: 065
  3. LOSARTAN. [Suspect]
     Active Substance: LOSARTAN
     Route: 065

REACTIONS (2)
  - Hepatic cancer [Unknown]
  - Prostate cancer [Unknown]
